FAERS Safety Report 14458589 (Version 2)
Quarter: 2018Q1

REPORT INFORMATION
  Report Type: Spontaneous
  Country: SK (occurrence: SK)
  Receive Date: 20180130
  Receipt Date: 20180215
  Transmission Date: 20180509
  Serious: Yes (Other)
  Sender: FDA-Public Use
  Company Number: SK-ELI_LILLY_AND_COMPANY-SK201801009818

PATIENT
  Age: 62 Year
  Sex: Male

DRUGS (5)
  1. PACLITAX NAB [Suspect]
     Active Substance: PACLITAXEL
     Indication: PANCREATIC CARCINOMA METASTATIC
     Dosage: 375 MG/M2, CYCLICAL
     Route: 065
  2. DEXAMETHASONUM [Concomitant]
     Active Substance: DEXAMETHASONE
     Indication: THROMBOCYTOPENIA
     Dosage: UNK, UNKNOWN
     Route: 065
  3. PACLITAX NAB [Suspect]
     Active Substance: PACLITAXEL
     Dosage: 125 MG/M2, UNKNOWN
     Route: 065
     Dates: start: 20160627
  4. GEMCITABINE HYDROCHLORIDE. [Suspect]
     Active Substance: GEMCITABINE HYDROCHLORIDE
     Indication: PANCREATIC CARCINOMA METASTATIC
     Dosage: 3000 MG/M2, CYCLICAL
     Route: 065
  5. GEMCITABINE HYDROCHLORIDE. [Suspect]
     Active Substance: GEMCITABINE HYDROCHLORIDE
     Dosage: 1000 UNK, UNK
     Route: 065

REACTIONS (9)
  - Pancytopenia [Not Recovered/Not Resolved]
  - Dysphonia [Recovering/Resolving]
  - Off label use [Unknown]
  - Vomiting [Not Recovered/Not Resolved]
  - Anaemia [Unknown]
  - Haematotoxicity [Not Recovered/Not Resolved]
  - Nausea [Not Recovered/Not Resolved]
  - Fatigue [Recovered/Resolved]
  - Gastrointestinal toxicity [Not Recovered/Not Resolved]

NARRATIVE: CASE EVENT DATE: 201705
